FAERS Safety Report 17483363 (Version 1)
Quarter: 2020Q1

REPORT INFORMATION
  Report Type: Spontaneous
  Country: US (occurrence: US)
  Receive Date: 20200302
  Receipt Date: 20200302
  Transmission Date: 20200409
  Serious: No
  Sender: FDA-Public Use
  Company Number: US-009507513-2002USA002587

PATIENT
  Age: 25 Year
  Sex: Female

DRUGS (1)
  1. NUVARING [Suspect]
     Active Substance: ETHINYL ESTRADIOL\ETONOGESTREL
     Indication: CONTRACEPTION
     Dosage: 1 VAGINAL RING, 3 WEEKS IN/ 1 WEEK OUT; STRENGTH: 0.015/0.12 (UNITS NOT REPORTED)
     Route: 067
     Dates: start: 20190927

REACTIONS (2)
  - Metrorrhagia [Not Recovered/Not Resolved]
  - Menstruation delayed [Not Recovered/Not Resolved]

NARRATIVE: CASE EVENT DATE: 20191205
